FAERS Safety Report 14894820 (Version 2)
Quarter: 2018Q2

REPORT INFORMATION
  Report Type: Spontaneous
  Country: JO (occurrence: JO)
  Receive Date: 20180515
  Receipt Date: 20180522
  Transmission Date: 20180711
  Serious: Yes (Other)
  Sender: FDA-Public Use
  Company Number: JO-WEST-WARD PHARMACEUTICALS CORP.-JO-H14001-18-03822

PATIENT
  Age: 35 Year
  Sex: Male

DRUGS (2)
  1. AMOCLAN [Suspect]
     Active Substance: AMOXICILLIN\CLAVULANIC ACID
     Indication: RESPIRATORY TRACT INFECTION
     Route: 048
  2. AMOCLAN [Suspect]
     Active Substance: AMOXICILLIN\CLAVULANIC ACID
     Indication: ESCHERICHIA URINARY TRACT INFECTION
     Route: 048
     Dates: start: 2018

REACTIONS (1)
  - Haematemesis [Recovered/Resolved]

NARRATIVE: CASE EVENT DATE: 2018
